FAERS Safety Report 17929687 (Version 4)
Quarter: 2020Q3

REPORT INFORMATION
  Report Type: Spontaneous
  Country: US (occurrence: US)
  Receive Date: 20200623
  Receipt Date: 20200924
  Transmission Date: 20201103
  Serious: No
  Sender: FDA-Public Use
  Company Number: US-PFIZER INC-2020240392

PATIENT
  Sex: Female

DRUGS (1)
  1. NITROGLYCERIN. [Suspect]
     Active Substance: NITROGLYCERIN
     Indication: CHEST PAIN
     Dosage: 0.4 MG, (STANDARD DOSE TAKE ONE AT THE ONSET AND THEN EVERY 5 MINUTES UP TO THREE TIMES)
     Route: 060

REACTIONS (4)
  - Poor quality product administered [Unknown]
  - Drug ineffective [Unknown]
  - Product physical issue [Unknown]
  - Intentional product misuse [Unknown]
